FAERS Safety Report 25887376 (Version 3)
Quarter: 2025Q4

REPORT INFORMATION
  Report Type: Spontaneous
  Country: US (occurrence: US)
  Receive Date: 20251006
  Receipt Date: 20251103
  Transmission Date: 20260118
  Serious: Yes (Other)
  Sender: ABBVIE
  Company Number: US-ABBVIE-6489700

PATIENT
  Sex: Female

DRUGS (1)
  1. ELAHERE [Suspect]
     Active Substance: MIRVETUXIMAB SORAVTANSINE-GYNX
     Indication: Neoplasm malignant
     Dosage: RECEIVED APPROXIMATELY SIX MONTHS PRIOR TO EVENT
     Route: 042

REACTIONS (3)
  - Cataract subcapsular [Recovering/Resolving]
  - Intraocular pressure increased [Recovering/Resolving]
  - Keratopathy [Recovering/Resolving]
